FAERS Safety Report 23544801 (Version 2)
Quarter: 2024Q1

REPORT INFORMATION
  Report Type: Spontaneous
  Country: US (occurrence: US)
  Receive Date: 20240220
  Receipt Date: 20240313
  Transmission Date: 20240409
  Serious: No
  Sender: FDA-Public Use
  Company Number: US-UPSHER-SMITH LABORATORIES, LLC-2024USL00158

PATIENT
  Age: 27 Year
  Sex: Male
  Weight: 83.9 kg

DRUGS (2)
  1. ISOTRETINOIN [Suspect]
     Active Substance: ISOTRETINOIN
     Indication: Acne
     Dosage: UNK, 2X/DAY FOR 30 DAYS
     Route: 048
     Dates: start: 20231025, end: 202311
  2. PRISTIQ EXTENDED-RELEASE [Concomitant]
     Active Substance: DESVENLAFAXINE SUCCINATE
     Route: 048

REACTIONS (1)
  - Product monitoring error [Recovered/Resolved]

NARRATIVE: CASE EVENT DATE: 20231025
